FAERS Safety Report 9161269 (Version 1)
Quarter: 2013Q1

REPORT INFORMATION
  Report Type: Spontaneous
  Country: US (occurrence: US)
  Receive Date: 20130313
  Receipt Date: 20130313
  Transmission Date: 20140127
  Serious: No
  Sender: FDA-Public Use
  Company Number: US-009507513-1303USA003558

PATIENT
  Sex: Male

DRUGS (3)
  1. VICTRELIS [Suspect]
     Indication: HEPATITIS C
     Dosage: UNK
     Route: 048
     Dates: start: 201108
  2. REBETOL [Suspect]
     Indication: HEPATITIS C
     Dosage: 1200 MG PER DAY (DIVIDED DOSES)
     Route: 048
     Dates: start: 201107
  3. PEGINTERFERON ALFA-2A [Suspect]
     Indication: HEPATITIS C
     Dosage: 180 MICROGRAM, QW
     Route: 058
     Dates: start: 201107

REACTIONS (3)
  - Ill-defined disorder [Unknown]
  - Back pain [Unknown]
  - Dry skin [Unknown]
